FAERS Safety Report 17669562 (Version 2)
Quarter: 2020Q2

REPORT INFORMATION
  Report Type: Spontaneous
  Country: US (occurrence: US)
  Receive Date: 20200415
  Receipt Date: 20200508
  Transmission Date: 20200713
  Serious: No
  Sender: FDA-Public Use
  Company Number: US-SHIRE-US202013268

PATIENT

DRUGS (1)
  1. VYVANSE [Suspect]
     Active Substance: LISDEXAMFETAMINE DIMESYLATE
     Indication: PRODUCT USED FOR UNKNOWN INDICATION
     Dosage: 30 MG OF VYVANSE IN THE MORNING,  20 MG MID-DAY
     Route: 065

REACTIONS (4)
  - Taste disorder [Unknown]
  - Drug ineffective [Unknown]
  - Product odour abnormal [Unknown]
  - Product physical issue [Unknown]
